FAERS Safety Report 15694741 (Version 1)
Quarter: 2018Q4

REPORT INFORMATION
  Report Type: Spontaneous
  Country: US (occurrence: US)
  Receive Date: 20181206
  Receipt Date: 20181206
  Transmission Date: 20190205
  Serious: No
  Sender: FDA-Public Use
  Company Number: US-ENDO PHARMACEUTICALS INC-2018-015997

PATIENT
  Age: 58 Year
  Sex: Male
  Weight: 65.76 kg

DRUGS (3)
  1. HERBAL EXTRACT NOS [Concomitant]
     Active Substance: HERBALS
     Indication: PRODUCT USED FOR UNKNOWN INDICATION
  2. XIAFLEX [Suspect]
     Active Substance: COLLAGENASE CLOSTRIDIUM HISTOLYTICUM
     Dosage: UNK, UNKNOWN, FIRST CYCLE; ONE INJECTION IN THE PENIS
     Route: 026
     Dates: start: 20180103
  3. XIAFLEX [Suspect]
     Active Substance: COLLAGENASE CLOSTRIDIUM HISTOLYTICUM
     Indication: PEYRONIE^S DISEASE
     Dosage: UNK, UNKNOWN, SECOND CYCLE; ONE INJECTION IN THE PENIS
     Route: 026
     Dates: start: 20180105

REACTIONS (4)
  - Contusion [Recovered/Resolved]
  - Penile contusion [Recovered/Resolved]
  - Injection site pain [Recovered/Resolved]
  - Injection site bruising [Recovered/Resolved]

NARRATIVE: CASE EVENT DATE: 20180103
